FAERS Safety Report 20206417 (Version 1)
Quarter: 2021Q4

REPORT INFORMATION
  Report Type: Spontaneous
  Country: US (occurrence: None)
  Receive Date: 20211217
  Receipt Date: 20211217
  Transmission Date: 20220303
  Serious: Yes (Other)
  Sender: FDA-Public Use
  Company Number: None

PATIENT
  Age: 85 Year
  Sex: Female

DRUGS (14)
  1. RYDAPT [Suspect]
     Active Substance: MIDOSTAURIN
     Dosage: FREQUENCY : TWICE A DAY;?
     Route: 048
     Dates: start: 20211130, end: 20211205
  2. CARVEDILOL [Concomitant]
     Active Substance: CARVEDILOL
  3. CYANOCOBALAMIN [Concomitant]
     Active Substance: CYANOCOBALAMIN
  4. DEFERASIROX [Concomitant]
     Active Substance: DEFERASIROX
  5. FUROSEMIDE [Concomitant]
     Active Substance: FUROSEMIDE
  6. LEVOTHYROXINE 0.125MG (125 MCG) TAB [Concomitant]
  7. MELATONIN 10MG CAPSULES [Concomitant]
  8. ONDANSETRON 4MG TABLETS [Concomitant]
  9. TEMAZEPAM 15MG CAPSULES [Concomitant]
  10. TYLENOL 8 HR 650MG TABLETS [Concomitant]
  11. VITAMIN D3 5000 UNIT CAPSULES [Concomitant]
  12. DESFERAL 500MG INJ, 1VIAL [Concomitant]
  13. FOLIC ACID [Concomitant]
     Active Substance: FOLIC ACID
  14. TESTOSTERONE CYP 200MG/ML INJ, 10ML [Concomitant]

REACTIONS (2)
  - Nausea [None]
  - Diarrhoea [None]

NARRATIVE: CASE EVENT DATE: 20211205
